FAERS Safety Report 4455988-X (Version None)
Quarter: 2004Q3

REPORT INFORMATION
  Report Type: 
  Country: None (occurrence: None)
  Receive Date: 20040922
  Receipt Date: 20040827
  Transmission Date: 20050211
  Serious: Yes (Other)
  Sender: FDA-Public Use
  Company Number: DE-GLAXOSMITHKLINE-D0044552A

PATIENT
  Age: 84 Year
  Sex: Male

DRUGS (4)
  1. AUGMENTIN '250' [Suspect]
     Dosage: 1.2MG THREE TIMES PER DAY
     Route: 042
     Dates: start: 20040820, end: 20040824
  2. MULTIPLE MEDICATION [Concomitant]
     Route: 065
  3. NEXIUM [Concomitant]
     Indication: PROPHYLAXIS
     Dosage: 20MG PER DAY
     Route: 065
     Dates: start: 20040820
  4. NOVODIGAL [Concomitant]
     Indication: ARRHYTHMIA
     Dosage: .2MG PER DAY
     Route: 065
     Dates: start: 20040817, end: 20040827

REACTIONS (1)
  - SUBARACHNOID HAEMORRHAGE [None]
